FAERS Safety Report 18947357 (Version 1)
Quarter: 2021Q1

REPORT INFORMATION
  Report Type: Spontaneous
  Country: US (occurrence: US)
  Receive Date: 20210227
  Receipt Date: 20210227
  Transmission Date: 20210420
  Serious: Yes (Hospitalization)
  Sender: FDA-Public Use
  Company Number: US-ROCHE-2778665

PATIENT
  Age: 63 Year
  Sex: Female

DRUGS (3)
  1. CYCLOBENZAPRINE. [Concomitant]
     Active Substance: CYCLOBENZAPRINE
  2. XOLAIR [Suspect]
     Active Substance: OMALIZUMAB
     Indication: URTICARIA
     Route: 058
     Dates: start: 20201229
  3. NAPROXEN. [Concomitant]
     Active Substance: NAPROXEN

REACTIONS (2)
  - Oropharyngeal pain [Unknown]
  - Lip swelling [Unknown]

NARRATIVE: CASE EVENT DATE: 20210211
